FAERS Safety Report 24283424 (Version 3)
Quarter: 2024Q3

REPORT INFORMATION
  Report Type: Spontaneous
  Country: MX (occurrence: MX)
  Receive Date: 20240904
  Receipt Date: 20240910
  Transmission Date: 20241017
  Serious: Yes (Hospitalization)
  Sender: JOHNSON AND JOHNSON
  Company Number: MX-BAYER-2024A126600

PATIENT
  Age: 79 Year
  Sex: Male
  Weight: 68 kg

DRUGS (9)
  1. XARELTO [Suspect]
     Active Substance: RIVAROXABAN
     Indication: Cardiac disorder
     Dosage: UNK
     Route: 048
     Dates: start: 202406
  2. XARELTO [Suspect]
     Active Substance: RIVAROXABAN
     Indication: Cardiac pacemaker insertion
     Dosage: UNK
     Route: 048
  3. XARELTO [Suspect]
     Active Substance: RIVAROXABAN
     Indication: Arrhythmia
     Route: 048
  4. XARELTO [Suspect]
     Active Substance: RIVAROXABAN
     Indication: Cerebral microinfarction
     Route: 048
  5. FINERENONE [Concomitant]
     Active Substance: FINERENONE
     Dosage: 10 MG, QD
     Route: 048
  6. DAPAGLIFLOZIN [Concomitant]
     Active Substance: DAPAGLIFLOZIN
     Dosage: 10 MG, QD
  7. LINAGLIPTIN [Concomitant]
     Active Substance: LINAGLIPTIN
     Dosage: 5 MG, QD
  8. ENTRESTO [Concomitant]
     Active Substance: SACUBITRIL\VALSARTAN
  9. CARVEDILOL [Concomitant]
     Active Substance: CARVEDILOL
     Dosage: 25 MG, QD

REACTIONS (2)
  - Bone operation [Unknown]
  - Off label use [Unknown]

NARRATIVE: CASE EVENT DATE: 20240601
